FAERS Safety Report 23310051 (Version 1)
Quarter: 2023Q4

REPORT INFORMATION
  Report Type: Spontaneous
  Country: US (occurrence: None)
  Receive Date: 20231218
  Receipt Date: 20231218
  Transmission Date: 20240109
  Serious: Yes (Hospitalization)
  Sender: FDA-Public Use
  Company Number: None

PATIENT
  Sex: Female

DRUGS (2)
  1. ADAKVEO [Suspect]
     Active Substance: CRIZANLIZUMAB-TMCA
     Indication: Sickle cell disease
     Dosage: 300MG EVERY 30 DAYS INTRAVENOUSLY?
     Route: 042
     Dates: start: 202209
  2. OXBRYTA [Concomitant]
     Active Substance: VOXELOTOR

REACTIONS (1)
  - Sickle cell anaemia with crisis [None]
